FAERS Safety Report 5640088-3 (Version None)
Quarter: 2008Q1

REPORT INFORMATION
  Report Type: 
  Country: None (occurrence: None)
  Receive Date: 20080227
  Receipt Date: 20080128
  Transmission Date: 20080703
  Serious: No
  Sender: FDA-Public Use
  Company Number: US-BAYER-200812834NA

PATIENT
  Age: 15 Year
  Sex: Female
  Weight: 103 kg

DRUGS (2)
  1. YASMIN [Suspect]
     Indication: MENSTRUATION IRREGULAR
     Route: 048
     Dates: start: 20080118
  2. SEROQUEL [Concomitant]
     Indication: MENTAL DISORDER
     Dates: start: 20050101

REACTIONS (1)
  - METRORRHAGIA [None]
